FAERS Safety Report 13591827 (Version 1)
Quarter: 2017Q2

REPORT INFORMATION
  Report Type: Spontaneous
  Country: US (occurrence: US)
  Receive Date: 20170530
  Receipt Date: 20170530
  Transmission Date: 20170830
  Serious: Yes (Other)
  Sender: FDA-Public Use
  Company Number: US-JNJFOC-20170526983

PATIENT
  Age: 66 Year
  Sex: Male

DRUGS (5)
  1. LUPRON DEPOT-PED [Concomitant]
     Active Substance: LEUPROLIDE ACETATE
     Route: 065
  2. PRAMIPEXOLE DIHYDROCHLORIDE. [Concomitant]
     Active Substance: PRAMIPEXOLE DIHYDROCHLORIDE
     Route: 065
  3. ENTACAPONE. [Concomitant]
     Active Substance: ENTACAPONE
     Route: 065
  4. CARBIDOPA/LEVODOPA [Concomitant]
     Active Substance: CARBIDOPA\LEVODOPA
     Route: 065
  5. ZYTIGA [Suspect]
     Active Substance: ABIRATERONE ACETATE
     Indication: PROSTATE CANCER
     Route: 048

REACTIONS (1)
  - Inguinal hernia [Unknown]
